FAERS Safety Report 9647359 (Version 3)
Quarter: 2013Q4

REPORT INFORMATION
  Report Type: Report from Study
  Country: GB (occurrence: GB)
  Receive Date: 20131027
  Receipt Date: 20131106
  Transmission Date: 20140711
  Serious: Yes (Hospitalization)
  Sender: FDA-Public Use
  Company Number: GB-ROCHE-1268226

PATIENT
  Age: 44 Year
  Sex: Female
  Weight: 108.9 kg

DRUGS (10)
  1. TRASTUZUMAB [Suspect]
     Indication: HER-2 POSITIVE BREAST CANCER
     Dosage: LAST DOSE PRIOR TO ORAL MUCOSITIS, DIARRHOEA, AND FEBRILE NEUTROPENIA: 20/AUG/2013.?LAST DOSE PRIOR
     Route: 042
     Dates: start: 20130820, end: 20130820
  2. TRASTUZUMAB [Suspect]
     Dosage: LAST DOSE PRIOR TO ORAL MUCOSITIS, DIARRHOEA, AND FEBRILE NEUTROPENIA: 20/AUG/2013.?LAST DOSE PRIOR
     Route: 042
  3. DOCETAXEL [Suspect]
     Indication: HER-2 POSITIVE BREAST CANCER
     Dosage: LAST DOSE PRIOR TO ORAL MUCOSITIS, DIARRHOEA, AND FEBRILE NEUTROPENIA: 20/AUG/2013.?LAST DOSE PRIOR
     Route: 042
     Dates: start: 20130820, end: 20130918
  4. DOCETAXEL [Suspect]
     Dosage: LAST DOSE PRIOR TO ORAL MUCOSITIS, DIARRHOEA, AND FEBRILE NEUTROPENIA: 20/AUG/2013.?LAST DOSE PRIOR
     Route: 042
     Dates: start: 20130918
  5. DEXAMETHASONE [Concomitant]
     Route: 065
     Dates: start: 20130819, end: 20130821
  6. DOMPERIDONE [Concomitant]
     Route: 065
     Dates: start: 20130820, end: 20130824
  7. DOMPERIDONE [Concomitant]
     Route: 065
     Dates: start: 20131008, end: 20131013
  8. FILGRASTIM [Concomitant]
     Route: 065
     Dates: start: 20131011, end: 20131016
  9. NYSTATIN [Concomitant]
     Route: 065
     Dates: start: 20131007
  10. PERTUZUMAB [Suspect]
     Indication: BREAST CANCER
     Dosage: LAST DOSE PRIOR TO ORAL MUCOSITIS, DIARRHOEA, AND FEBRILE NEUTROPENIA: 20/AUG/2013.?LAST DOSE PRIOR
     Route: 042
     Dates: start: 20130820

REACTIONS (4)
  - Rectal haemorrhage [Recovered/Resolved]
  - Stomatitis [Recovered/Resolved]
  - Diarrhoea [Recovered/Resolved]
  - Febrile neutropenia [Recovered/Resolved]
